FAERS Safety Report 20713263 (Version 1)
Quarter: 2022Q2

REPORT INFORMATION
  Report Type: Spontaneous
  Country: US (occurrence: US)
  Receive Date: 20220415
  Receipt Date: 20220415
  Transmission Date: 20220721
  Serious: Yes (Life-Threatening, Hospitalization)
  Sender: FDA-Public Use
  Company Number: US-MYLANLABS-2022M1027046

PATIENT
  Age: 59 Year
  Sex: Male

DRUGS (1)
  1. HEPARIN [Suspect]
     Active Substance: HEPARIN SODIUM
     Indication: Anticoagulant therapy
     Dosage: SYSTEMIC HEPARIN INFUSION

REACTIONS (5)
  - Haemoptysis [Unknown]
  - Septic shock [Unknown]
  - Acute kidney injury [Recovered/Resolved]
  - Haemorrhage [Unknown]
  - Thrombocytopenia [Unknown]
